FAERS Safety Report 24657004 (Version 1)
Quarter: 2024Q4

REPORT INFORMATION
  Report Type: Spontaneous
  Country: CN (occurrence: CN)
  Receive Date: 20241125
  Receipt Date: 20241125
  Transmission Date: 20250115
  Serious: Yes (Hospitalization)
  Sender: NOVO NORDISK
  Company Number: None

PATIENT
  Age: 53 Year
  Sex: Female
  Weight: 60 kg

DRUGS (13)
  1. INSULIN ASPART\INSULIN DEGLUDEC [Suspect]
     Active Substance: INSULIN ASPART\INSULIN DEGLUDEC
     Indication: Type 2 diabetes mellitus
     Dosage: 36 IU, QD(18U BID BEFORE BREAKFAST AND DINNER)
     Route: 058
     Dates: start: 20241108, end: 20241109
  2. SODIUM CHLORIDE [Concomitant]
     Active Substance: SODIUM CHLORIDE
     Dosage: 10 ML, QD
     Route: 042
     Dates: start: 20241107, end: 20241111
  3. SODIUM CHLORIDE [Concomitant]
     Active Substance: SODIUM CHLORIDE
     Indication: Vehicle solution use
     Dosage: 500 ML, QD
     Route: 042
     Dates: start: 20241106, end: 20241111
  4. CLODRONATE DISODIUM [Concomitant]
     Active Substance: CLODRONATE DISODIUM
     Indication: Osteoporosis
     Dosage: 0.3 G, QD
     Route: 042
     Dates: start: 20241106, end: 20241111
  5. METHYLCOBALAMIN [Concomitant]
     Active Substance: METHYLCOBALAMIN
     Indication: Neuropathy peripheral
     Dosage: 1 MG, QD
     Route: 042
     Dates: start: 20241107, end: 20241111
  6. VITAMIN D2 [Concomitant]
     Active Substance: ERGOCALCIFEROL
     Indication: Osteoporosis
     Dosage: 0.25 MG, QD
     Route: 048
     Dates: start: 20241107, end: 20241111
  7. HENAGLIFLOZIN PROLINE [Concomitant]
     Active Substance: HENAGLIFLOZIN PROLINE
     Indication: Type 2 diabetes mellitus
     Dosage: 10 MG, QD
     Route: 048
     Dates: start: 20241107, end: 20241111
  8. INSULIN ASPART [Concomitant]
     Active Substance: INSULIN ASPART
     Indication: Type 2 diabetes mellitus
     Dosage: 4 IU, TID
     Route: 058
     Dates: start: 20241105, end: 20241105
  9. INSULIN ASPART [Concomitant]
     Active Substance: INSULIN ASPART
     Dosage: 6 IU, TID
     Route: 058
     Dates: start: 20241106, end: 20241106
  10. INSULIN ASPART [Concomitant]
     Active Substance: INSULIN ASPART
     Dosage: 8 IU, TID
     Route: 058
     Dates: start: 20241107, end: 20241107
  11. INSULIN ASPART [Concomitant]
     Active Substance: INSULIN ASPART
     Dosage: 12 IU, TID
     Route: 058
     Dates: start: 20241108, end: 20241109
  12. INSULIN ASPART [Concomitant]
     Active Substance: INSULIN ASPART
     Dosage: 18 IU, BID(BEFORE BREAKFAST AND DINNER BID)
     Route: 058
     Dates: start: 20241110, end: 20241112
  13. ACARBOSE [Concomitant]
     Active Substance: ACARBOSE
     Indication: Type 2 diabetes mellitus
     Dosage: 50 MG, TID
     Route: 048
     Dates: start: 20241107, end: 20241111

REACTIONS (7)
  - Rash [Not Recovered/Not Resolved]
  - Pruritus [Not Recovered/Not Resolved]
  - Pyrexia [Not Recovered/Not Resolved]
  - White blood cell count increased [Not Recovered/Not Resolved]
  - Granulocyte count increased [Not Recovered/Not Resolved]
  - Procalcitonin increased [Not Recovered/Not Resolved]
  - Toxic skin eruption [Unknown]

NARRATIVE: CASE EVENT DATE: 20241108
